FAERS Safety Report 21467822 (Version 1)
Quarter: 2022Q4

REPORT INFORMATION
  Report Type: Spontaneous
  Country: US (occurrence: US)
  Receive Date: 20221017
  Receipt Date: 20221017
  Transmission Date: 20230112
  Serious: No
  Sender: FDA-Public Use
  Company Number: US-ALLERGAN-2221157US

PATIENT
  Age: 83 Year
  Weight: 84.821 kg

DRUGS (4)
  1. LINZESS [Suspect]
     Active Substance: LINACLOTIDE
     Indication: Irritable bowel syndrome
     Dosage: 145 MICROGRAM
     Route: 048
     Dates: start: 20220613, end: 20220626
  2. MODERNA COVID-19 VACCINE [Concomitant]
     Active Substance: ELASOMERAN
     Indication: COVID-19
     Dosage: UNK UNK, SINGLE
     Route: 030
     Dates: start: 202108, end: 202108
  3. MODERNA COVID-19 VACCINE [Concomitant]
     Active Substance: ELASOMERAN
     Dosage: UNK UNK, SINGLE
     Route: 030
     Dates: start: 202108, end: 202108
  4. MODERNA COVID-19 VACCINE [Concomitant]
     Active Substance: ELASOMERAN
     Dosage: UNK UNK, SINGLE
     Route: 030
     Dates: start: 202110, end: 202110

REACTIONS (6)
  - Discomfort [Recovering/Resolving]
  - Dehydration [Unknown]
  - Asthenia [Recovering/Resolving]
  - Anal incontinence [Recovered/Resolved]
  - Diarrhoea [Recovered/Resolved]
  - Diarrhoea [Recovered/Resolved]

NARRATIVE: CASE EVENT DATE: 20220613
